FAERS Safety Report 9704415 (Version 1)
Quarter: 2013Q4

REPORT INFORMATION
  Report Type: Spontaneous
  Country: VN (occurrence: VN)
  Receive Date: 20131122
  Receipt Date: 20131122
  Transmission Date: 20140711
  Serious: Yes (Other)
  Sender: FDA-Public Use
  Company Number: VN-ASTRAZENECA-2013SE83999

PATIENT
  Sex: Male

DRUGS (2)
  1. MARCAIN SPINAL HEAVY [Suspect]
     Dosage: ONCE
     Route: 037
  2. FENTANYL [Suspect]
     Route: 065

REACTIONS (1)
  - Convulsion [Recovered/Resolved]
